FAERS Safety Report 8370378-5 (Version None)
Quarter: 2012Q2

REPORT INFORMATION
  Report Type: 
  Country: None (occurrence: None)
  Receive Date: 20120518
  Receipt Date: 20120510
  Transmission Date: 20120825
  Serious: Yes (Other)
  Sender: FDA-Public Use
  Company Number: IT-EISAI INC-E7867-00265-SPO-IT

PATIENT
  Age: 9 Year
  Sex: Male

DRUGS (2)
  1. ETOPOSIDE [Suspect]
     Route: 065
  2. GLIADEL [Suspect]
     Route: 018

REACTIONS (2)
  - PARAESTHESIA [None]
  - HYPOTONIA [None]
